FAERS Safety Report 9312817 (Version 2)
Quarter: 2013Q4

REPORT INFORMATION
  Report Type: Spontaneous
  Country: US (occurrence: US)
  Receive Date: 20130528
  Receipt Date: 20131215
  Transmission Date: 20140711
  Serious: No
  Sender: FDA-Public Use
  Company Number: US-009507513-1305USA012614

PATIENT
  Age: 14 Year
  Sex: Female
  Weight: 54.42 kg

DRUGS (1)
  1. IMPLANON [Suspect]
     Dosage: 1 ROD
     Route: 059
     Dates: start: 20130508

REACTIONS (6)
  - Anaesthesia [Unknown]
  - Device difficult to use [Unknown]
  - Device difficult to use [Unknown]
  - Pain in extremity [Unknown]
  - Medical device complication [Unknown]
  - Implant site bruising [Unknown]
